FAERS Safety Report 13642322 (Version 2)
Quarter: 2018Q2

REPORT INFORMATION
  Report Type: Spontaneous
  Country: JP (occurrence: JP)
  Receive Date: 20170612
  Receipt Date: 20180523
  Transmission Date: 20180711
  Serious: Yes (Hospitalization)
  Sender: FDA-Public Use
  Company Number: JP-BAYER-2017-010666

PATIENT
  Age: 68 Year
  Sex: Male
  Weight: 65 kg

DRUGS (17)
  1. ZYTIGA [Concomitant]
     Active Substance: ABIRATERONE ACETATE
     Dosage: 1000 MG, QD
  2. ABIRATERONE ACETATE. [Suspect]
     Active Substance: ABIRATERONE ACETATE
  3. HACHIAZULE [Concomitant]
     Dosage: UNK, TID
  4. XOFIGO [Suspect]
     Active Substance: RADIUM RA-223 DICHLORIDE
     Indication: HORMONE-REFRACTORY PROSTATE CANCER
     Dosage: 3.6 MBQ, Q4WK
     Route: 042
     Dates: start: 20161206, end: 20161206
  5. XOFIGO [Suspect]
     Active Substance: RADIUM RA-223 DICHLORIDE
     Indication: HORMONE-REFRACTORY PROSTATE CANCER
     Dosage: 3.6 MBQ, Q4WK
     Route: 042
     Dates: start: 20170207, end: 20170207
  6. CALCIUM LACTATE [Concomitant]
     Active Substance: CALCIUM LACTATE
     Dosage: 2 G, TID
  7. PREDONINE [Concomitant]
     Active Substance: PREDNISOLONE
     Dosage: 10 MG, QD
  8. XOFIGO [Suspect]
     Active Substance: RADIUM RA-223 DICHLORIDE
     Indication: METASTASES TO BONE
     Dosage: 3.6 MBQ, Q4WK
     Route: 042
     Dates: start: 20161111, end: 20161111
  9. CALFINA AMEL [Concomitant]
     Dosage: 1 ?G, QD
  10. DENOSUMAB [Concomitant]
     Active Substance: DENOSUMAB
     Dosage: UNK
     Route: 058
     Dates: start: 20161018, end: 20161018
  11. XOFIGO [Suspect]
     Active Substance: RADIUM RA-223 DICHLORIDE
     Indication: HORMONE-REFRACTORY PROSTATE CANCER
     Dosage: 3.6 MBQ, Q4WK
     Route: 042
     Dates: start: 20170106, end: 20170106
  12. XOFIGO [Suspect]
     Active Substance: RADIUM RA-223 DICHLORIDE
     Indication: HORMONE-REFRACTORY PROSTATE CANCER
     Dosage: 3.6 MBQ, Q4WK
     Route: 042
     Dates: start: 20170307, end: 20170307
  13. CORTICOSTEROID NOS [Suspect]
     Active Substance: CORTICOSTEROID NOS
  14. MIYA-BM [Concomitant]
     Active Substance: CLOSTRIDIUM BUTYRICUM SPORES STRAIN M-55
     Dosage: 1 DF, TID
  15. DEGARELIX [Concomitant]
     Active Substance: DEGARELIX
     Dosage: UNK
     Route: 058
     Dates: start: 20161018, end: 20161018
  16. XOFIGO [Suspect]
     Active Substance: RADIUM RA-223 DICHLORIDE
     Indication: HORMONE-REFRACTORY PROSTATE CANCER
     Dosage: 3.6 MBQ, Q4WK
     Route: 042
     Dates: start: 20161011, end: 20161011
  17. LANSOPRAZOLE. [Concomitant]
     Active Substance: LANSOPRAZOLE
     Dosage: 15 MG, QD

REACTIONS (4)
  - Blood alkaline phosphatase increased [Unknown]
  - Femoral neck fracture [Recovered/Resolved with Sequelae]
  - Bone pain [Recovered/Resolved]
  - Myalgia [Not Recovered/Not Resolved]

NARRATIVE: CASE EVENT DATE: 201701
